FAERS Safety Report 9315204 (Version 3)
Quarter: 2013Q2

REPORT INFORMATION
  Report Type: Spontaneous
  Country: GB (occurrence: GB)
  Receive Date: 20130529
  Receipt Date: 20130630
  Transmission Date: 20140414
  Serious: Yes (Other)
  Sender: FDA-Public Use
  Company Number: GB-TEVA-407824ISR

PATIENT
  Age: 62 Year
  Sex: Male

DRUGS (1)
  1. SIMVASTATIN [Suspect]
     Indication: HYPERCHOLESTEROLAEMIA
     Dosage: 20 MILLIGRAM DAILY;
     Route: 048
     Dates: start: 20130408, end: 20130417

REACTIONS (3)
  - Priapism [Recovered/Resolved]
  - Tinnitus [Recovered/Resolved]
  - Energy increased [Recovered/Resolved]
